FAERS Safety Report 7651905-X (Version None)
Quarter: 2011Q3

REPORT INFORMATION
  Report Type: 
  Country: None (occurrence: None)
  Receive Date: 20110803
  Receipt Date: 20110722
  Transmission Date: 20111222
  Serious: No
  Sender: FDA-Public Use
  Company Number: US-BIOGENIDEC-2011BI021827

PATIENT
  Age: 50 Year
  Sex: Female

DRUGS (1)
  1. TYSABRI [Suspect]
     Indication: MULTIPLE SCLEROSIS
     Route: 042
     Dates: start: 20110405, end: 20110620

REACTIONS (11)
  - THROAT TIGHTNESS [None]
  - DEPRESSION [None]
  - MEMORY IMPAIRMENT [None]
  - URTICARIA [None]
  - MULTIPLE SCLEROSIS [None]
  - MALAISE [None]
  - HYPERSENSITIVITY [None]
  - TOOTH INFECTION [None]
  - FATIGUE [None]
  - DRUG INEFFECTIVE [None]
  - PRURITUS [None]
